FAERS Safety Report 5736145-3 (Version None)
Quarter: 2008Q2

REPORT INFORMATION
  Report Type: 
  Country: None (occurrence: None)
  Receive Date: 20080513
  Receipt Date: 20080509
  Transmission Date: 20081010
  Serious: Yes (Hospitalization)
  Sender: FDA-Public Use
  Company Number: A0727222A

PATIENT
  Age: 52 Year
  Sex: Male

DRUGS (4)
  1. ALLI [Suspect]
     Dates: start: 20080201, end: 20080508
  2. PLAVIX [Concomitant]
  3. NORVASC [Concomitant]
  4. ZETIA [Concomitant]

REACTIONS (7)
  - ABDOMINAL DISCOMFORT [None]
  - ABDOMINAL PAIN [None]
  - COLITIS [None]
  - GASTROINTESTINAL DISORDER [None]
  - IRRITABLE BOWEL SYNDROME [None]
  - PAIN [None]
  - VIRAL INFECTION [None]
